FAERS Safety Report 6461972-7 (Version None)
Quarter: 2009Q4

REPORT INFORMATION
  Report Type: 
  Country: None (occurrence: None)
  Receive Date: 20091123
  Receipt Date: 20091109
  Transmission Date: 20100525
  Serious: Yes (Hospitalization)
  Sender: FDA-Public Use
  Company Number: 2009AC000394

PATIENT
  Age: 63 Year
  Sex: Female

DRUGS (29)
  1. DIGOXIN [Suspect]
     Dosage: 0.25 MG;QD; PO
     Route: 048
  2. AMITRITYLINE [Concomitant]
  3. ATENOLOL [Concomitant]
  4. BIMATOPROST [Concomitant]
  5. DILTIAZEM [Concomitant]
  6. LASIX [Concomitant]
  7. LANTUS [Concomitant]
  8. NOVOLOG [Concomitant]
  9. INSULIN [Concomitant]
  10. PRAMLINTIDE [Concomitant]
  11. SPIRONOLACTONE [Concomitant]
  12. OMEPRAZOLE [Concomitant]
  13. CRESTOR [Concomitant]
  14. VALSARTAN [Concomitant]
  15. ISOSORBIDE [Concomitant]
  16. PLAVIX [Concomitant]
  17. ASPIRIN [Concomitant]
  18. ELAVIL [Concomitant]
  19. LASIX [Concomitant]
  20. PRILOSEC [Concomitant]
  21. ISORDIL [Concomitant]
  22. CARDIZEM [Concomitant]
  23. DIOVAN [Concomitant]
  24. NOVOLOG [Concomitant]
  25. LANTUS [Concomitant]
  26. CRESTOR CR [Concomitant]
  27. PLAVIX [Concomitant]
  28. FISH OIL [Concomitant]
  29. COUMADIN [Concomitant]

REACTIONS (16)
  - ABDOMINAL PAIN [None]
  - ATRIAL FIBRILLATION [None]
  - CARDIOACTIVE DRUG LEVEL INCREASED [None]
  - CORONARY ARTERY STENOSIS [None]
  - COUGH [None]
  - DIZZINESS [None]
  - DYSPNOEA [None]
  - DYSPNOEA EXERTIONAL [None]
  - ECONOMIC PROBLEM [None]
  - ELECTROCARDIOGRAM ABNORMAL [None]
  - FATIGUE [None]
  - MULTIPLE INJURIES [None]
  - OEDEMA [None]
  - RENAL FAILURE CHRONIC [None]
  - SURGERY [None]
  - UNEVALUABLE EVENT [None]
